FAERS Safety Report 13592250 (Version 1)
Quarter: 2017Q2

REPORT INFORMATION
  Report Type: Spontaneous
  Country: US (occurrence: US)
  Receive Date: 20170530
  Receipt Date: 20170530
  Transmission Date: 20170830
  Serious: No
  Sender: FDA-Public Use
  Company Number: US-009507513-1705USA004115

PATIENT
  Age: 31 Year
  Sex: Female
  Weight: 94.4 kg

DRUGS (1)
  1. NEXPLANON [Suspect]
     Active Substance: ETONOGESTREL
     Indication: CONTRACEPTION
     Dosage: 68 MG (1 ROD), EVERY 3 YEARS(ARM)
     Route: 059
     Dates: start: 20170324

REACTIONS (3)
  - Skin disorder [Not Recovered/Not Resolved]
  - Implant site pain [Not Recovered/Not Resolved]
  - Medical device site discomfort [Not Recovered/Not Resolved]

NARRATIVE: CASE EVENT DATE: 20170428
